FAERS Safety Report 11559791 (Version 1)
Quarter: 2015Q3

REPORT INFORMATION
  Report Type: Spontaneous
  Country: US (occurrence: None)
  Receive Date: 20150925
  Receipt Date: 20150925
  Transmission Date: 20151125
  Serious: Yes (Life-Threatening, Other)
  Sender: FDA-Public Use
  Company Number: None

PATIENT
  Age: 36 Year
  Sex: Female
  Weight: 68.04 kg

DRUGS (2)
  1. CLINDAMYCIN [Suspect]
     Active Substance: CLINDAMYCIN\CLINDAMYCIN PHOSPHATE
     Indication: TOOTH INFECTION
     Route: 048
     Dates: start: 201508
  2. CLINDAMYCIN [Suspect]
     Active Substance: CLINDAMYCIN\CLINDAMYCIN PHOSPHATE
     Indication: BACTERIAL INFECTION
     Route: 048
     Dates: start: 201508

REACTIONS (22)
  - Vertigo [None]
  - Drug prescribing error [None]
  - Bone pain [None]
  - Insomnia [None]
  - Rash [None]
  - Tooth disorder [None]
  - Nausea [None]
  - Decreased appetite [None]
  - Dry mouth [None]
  - Vomiting [None]
  - Anuria [None]
  - Arthralgia [None]
  - Anxiety [None]
  - Fatigue [None]
  - Pyrexia [None]
  - Joint crepitation [None]
  - Hyperhidrosis [None]
  - Flushing [None]
  - Malaise [None]
  - Soft tissue disorder [None]
  - Pain [None]
  - Gingival disorder [None]

NARRATIVE: CASE EVENT DATE: 20140815
